FAERS Safety Report 6231856-8 (Version None)
Quarter: 2009Q2

REPORT INFORMATION
  Report Type: 
  Country: None (occurrence: None)
  Receive Date: 20090612
  Receipt Date: 20090612
  Transmission Date: 20091009
  Serious: Yes (Life-Threatening, Hospitalization)
  Sender: FDA-Public Use
  Company Number: None

PATIENT
  Age: 46 Year
  Sex: Female
  Weight: 56.6996 kg

DRUGS (7)
  1. BENADRYL [Suspect]
     Indication: HYPERSENSITIVITY
     Dosage: 25MG
  2. RED FOOD DYE [Suspect]
     Dosage: RED FOOD DYE
  3. DORITIOS FRITO LAY [Suspect]
     Dosage: ONE BAG
  4. JU JU BEES [Concomitant]
  5. CANDT CANES [Concomitant]
  6. CHEESE WITH ANNATTO [Concomitant]
  7. SUGAR BABIES [Concomitant]

REACTIONS (3)
  - BLOOD PRESSURE INCREASED [None]
  - RASH [None]
  - REACTION TO DRUG EXCIPIENTS [None]
